FAERS Safety Report 6527798-0 (Version None)
Quarter: 2010Q1

REPORT INFORMATION
  Report Type: 
  Country: None (occurrence: None)
  Receive Date: 20100106
  Receipt Date: 20091229
  Transmission Date: 20100710
  Serious: Yes (Life-Threatening)
  Sender: FDA-Public Use
  Company Number: ES-ROCHE-673903

PATIENT
  Age: 66 Year
  Sex: Male

DRUGS (1)
  1. TAMIFLU [Suspect]
     Route: 065

REACTIONS (1)
  - DRUG INEFFECTIVE [None]
